FAERS Safety Report 7992440-9 (Version None)
Quarter: 2011Q4

REPORT INFORMATION
  Report Type: 
  Country: None (occurrence: None)
  Receive Date: 20111219
  Receipt Date: 20111216
  Transmission Date: 20120403
  Serious: Yes (Death, Other)
  Sender: FDA-Public Use
  Company Number: PHHY2011AU106051

PATIENT
  Sex: Female

DRUGS (19)
  1. ZOLEDRONOC ACID [Suspect]
     Indication: OSTEOPOROSIS
     Dosage: 5 MG, UNK
     Route: 042
     Dates: start: 20090428
  2. BUPRENORPHINE [Concomitant]
     Dosage: 10MCG/HR TRANSDERMAL PATCH - 1 ONCE A WEEK
     Route: 062
  3. RISPERDAL [Concomitant]
     Dosage: 0.5 MG, QD
  4. FLUVAX [Concomitant]
     Dates: start: 20090408
  5. CALCIUM CARBONATE [Concomitant]
     Dosage: 1 BEFORE BED
  6. ZOLEDRONOC ACID [Suspect]
     Dosage: 5 MG, UNK
     Route: 042
     Dates: start: 20100518
  7. PREDNISOLONE [Concomitant]
     Dosage: 5 MG, 2 TABLETS TWICE DAILY
  8. VITAMIN D [Concomitant]
     Dosage: 1000 IU, UNK
  9. MACRODANTIN [Concomitant]
     Dosage: 100 MG, QD
  10. PANAMAX [Concomitant]
     Dosage: 500 MG, UNK
  11. FOSINOPRIL SODIUM [Concomitant]
     Dosage: 200 MG, 1 TABLET IN THE MORNING
  12. OXAZEPAM [Concomitant]
     Dosage: 15 MG, HALF A TABLET THREE TIMES A DAY WHEN REQUIRED
  13. FLUVAX [Concomitant]
     Dates: start: 20070324
  14. ATENOLOL [Concomitant]
     Dosage: 50 MG, QD
  15. VITAMIN D [Concomitant]
     Dosage: 200 IU, 1 BEFORE BED
  16. FLUVAX [Concomitant]
     Dates: start: 20100304
  17. BISACODYL [Concomitant]
     Dosage: 10 MG, UNK
     Route: 054
  18. LEXAPRO [Concomitant]
     Dosage: 20 MG, QD
  19. OSTELIN [Concomitant]
     Dosage: 1 CAPSULE IN THE MORNING

REACTIONS (6)
  - FALL [None]
  - SEPSIS [None]
  - LOBAR PNEUMONIA [None]
  - DEHYDRATION [None]
  - HYPOPHAGIA [None]
  - DEATH [None]
